FAERS Safety Report 8509702-9 (Version None)
Quarter: 2012Q3

REPORT INFORMATION
  Report Type: 
  Country: None (occurrence: None)
  Receive Date: 20120703
  Receipt Date: 20120620
  Transmission Date: 20120928
  Serious: Yes (Hospitalization)
  Sender: FDA-Public Use
  Company Number: JPI-P-022224

PATIENT
  Age: 33 Year
  Sex: Male

DRUGS (2)
  1. XYREM [Suspect]
     Indication: CATAPLEXY
     Dosage: 4.5 GM (2.25 GM,2 IN 1 D),0RAL ; ORAL ; (3.75 GM/3 GM),ORAL
     Route: 048
     Dates: start: 20120309
  2. XYREM [Suspect]
     Indication: CATAPLEXY
     Dosage: 4.5 GM (2.25 GM,2 IN 1 D),0RAL ; ORAL ; (3.75 GM/3 GM),ORAL
     Route: 048
     Dates: start: 20110621

REACTIONS (3)
  - HERNIA REPAIR [None]
  - MEMORY IMPAIRMENT [None]
  - SOMNAMBULISM [None]
